FAERS Safety Report 5513492-1 (Version None)
Quarter: 2007Q4

REPORT INFORMATION
  Report Type: 
  Country: None (occurrence: None)
  Receive Date: 20071112
  Receipt Date: 20071031
  Transmission Date: 20080405
  Serious: Yes (Other)
  Sender: FDA-Public Use
  Company Number: US-PFIZER INC-2007093383

PATIENT
  Age: 45 Year
  Sex: Female
  Weight: 79 kg

DRUGS (4)
  1. CHANTIX [Suspect]
     Indication: SMOKING CESSATION THERAPY
  2. ZOCOR [Concomitant]
  3. CELEXA [Concomitant]
  4. FENTANYL [Concomitant]
     Route: 062

REACTIONS (4)
  - DEPRESSION [None]
  - HORMONE LEVEL ABNORMAL [None]
  - NAUSEA [None]
  - VOMITING [None]
